FAERS Safety Report 16394292 (Version 1)
Quarter: 2019Q2

REPORT INFORMATION
  Report Type: Spontaneous
  Country: TR (occurrence: TR)
  Receive Date: 20190605
  Receipt Date: 20190605
  Transmission Date: 20190711
  Serious: Yes (Other)
  Sender: FDA-Public Use
  Company Number: TR-LUNDBECK-DKLU2079639

PATIENT
  Age: 17 Month
  Sex: Male

DRUGS (8)
  1. VALPROIC ACID. [Suspect]
     Active Substance: VALPROIC ACID
     Indication: FEBRILE CONVULSION
     Route: 065
  2. LAMOTRIGINE. [Suspect]
     Active Substance: LAMOTRIGINE
     Indication: FEBRILE CONVULSION
     Route: 065
  3. CLOBAZAM (ORAL SUSPENSION) [Suspect]
     Active Substance: CLOBAZAM
     Indication: FEBRILE CONVULSION
     Route: 065
  4. LEVETIRACETAM. [Suspect]
     Active Substance: LEVETIRACETAM
     Indication: FEBRILE CONVULSION
     Route: 065
  5. CARBAMAZEPINE. [Suspect]
     Active Substance: CARBAMAZEPINE
     Indication: FEBRILE CONVULSION
     Route: 065
  6. OXCARBAZEPINE. [Suspect]
     Active Substance: OXCARBAZEPINE
     Indication: FEBRILE CONVULSION
     Route: 065
  7. PHENOBARBITAL. [Suspect]
     Active Substance: PHENOBARBITAL
     Indication: FEBRILE CONVULSION
     Route: 065
  8. TOPIRAMATE. [Suspect]
     Active Substance: TOPIRAMATE
     Indication: FEBRILE CONVULSION
     Route: 065

REACTIONS (6)
  - Drug ineffective [Unknown]
  - Seizure [Recovered/Resolved]
  - Impaired quality of life [Recovered/Resolved]
  - Restlessness [Unknown]
  - Educational problem [Recovered/Resolved]
  - Weight decreased [Unknown]
